FAERS Safety Report 23238152 (Version 1)
Quarter: 2023Q4

REPORT INFORMATION
  Report Type: Report from Study
  Country: US (occurrence: US)
  Receive Date: 20231129
  Receipt Date: 20231129
  Transmission Date: 20240110
  Serious: Yes (Hospitalization)
  Sender: FDA-Public Use
  Company Number: US-ABBVIE-5510356

PATIENT
  Sex: Male

DRUGS (1)
  1. VENCLEXTA [Suspect]
     Active Substance: VENETOCLAX
     Indication: Plasma cell myeloma
     Dosage: TIME INTERVAL: 0.16666667 DAYS
     Route: 048
     Dates: start: 201912

REACTIONS (4)
  - Spinal compression fracture [Unknown]
  - Pain [Unknown]
  - Confusional state [Unknown]
  - Blood immunoglobulin M increased [Unknown]
